FAERS Safety Report 5586433-9 (Version None)
Quarter: 2008Q1

REPORT INFORMATION
  Report Type: 
  Country: None (occurrence: None)
  Receive Date: 20080110
  Receipt Date: 20080102
  Transmission Date: 20080703
  Serious: Yes (Hospitalization)
  Sender: FDA-Public Use
  Company Number: CZ-ELI_LILLY_AND_COMPANY-CZ200801000664

PATIENT
  Age: 26 Year
  Sex: Female

DRUGS (21)
  1. OLANZAPINE [Suspect]
     Indication: ACUTE PSYCHOSIS
     Dosage: 10 MG, 3/D
     Route: 048
     Dates: start: 20071023, end: 20071101
  2. OLANZAPINE [Suspect]
     Dosage: 20 MG, DAILY (1/D)
     Route: 048
     Dates: start: 20071220
  3. OLANZAPINE [Suspect]
     Dosage: 15 MG, DAILY (1/D)
     Route: 048
  4. OLANZAPINE [Suspect]
     Dosage: 10 MG, DAILY (1/D)
     Route: 048
     Dates: start: 20080104
  5. DEPAKENE [Concomitant]
     Indication: EPILEPSY
     Dosage: 500 MG, 3/D
     Route: 048
     Dates: start: 20071201
  6. PIRACETAM [Concomitant]
     Dosage: 2400 MG, 2/D
     Route: 048
     Dates: start: 20071201
  7. OFLOXIN [Concomitant]
     Indication: INFECTION PROPHYLAXIS
     Dosage: 200 MG, 2/D
     Route: 048
     Dates: start: 20071220
  8. NEUROTOP [Concomitant]
     Indication: EPILEPSY
  9. BIPERIDEN HYDROCHLORIDE TAB [Concomitant]
  10. SULPIRIDE [Concomitant]
  11. RIVOTRIL [Concomitant]
     Indication: PSYCHOTIC DISORDER
  12. ZYRTEC [Concomitant]
     Indication: RASH
  13. ZIPRASIDONE HCL [Concomitant]
  14. TIAPRIDAL [Concomitant]
  15. TISERCIN [Concomitant]
  16. CHLORPROTHIXEN [Concomitant]
  17. CISORDINOL /00075802/ [Concomitant]
  18. HYPNOGEN [Concomitant]
  19. PLEGOMAZIN [Concomitant]
  20. SOLUTIONS FOR PARENTERAL NUTRITION [Concomitant]
     Indication: DYSPHAGIA
  21. LEPONEX [Concomitant]
     Indication: PSYCHOTIC DISORDER
     Dosage: 400 MG, DAILY (1/D)
     Dates: start: 20071112, end: 20071218

REACTIONS (7)
  - DERMATITIS ALLERGIC [None]
  - DYSPHAGIA [None]
  - EATING DISORDER [None]
  - ELECTROCONVULSIVE THERAPY [None]
  - NEUTROPENIA [None]
  - NO THERAPEUTIC RESPONSE [None]
  - OVERDOSE [None]
